FAERS Safety Report 9457466 (Version 1)
Quarter: 2013Q3

REPORT INFORMATION
  Report Type: Spontaneous
  Country: PH (occurrence: None)
  Receive Date: 20130812
  Receipt Date: 20130812
  Transmission Date: 20140515
  Serious: Yes (Life-Threatening, Hospitalization)
  Sender: FDA-Public Use
  Company Number: SYM-2013-08595

PATIENT
  Age: 55 Year
  Sex: Female

DRUGS (10)
  1. DILTIAZEM [Suspect]
     Indication: HYPERTHYROIDISM
  2. DEXAMETHASONE (DEXAMETHASONE) [Suspect]
     Indication: HYPERTHYROIDISM
  3. GLIMEPIRIDE (GLIMEPIRIDE) [Suspect]
     Indication: DIABETES MELLITUS
  4. THIAMAZOLE [Suspect]
     Indication: BASEDOW^S DISEASE
  5. TELMISARTAN (TELMISARTAN) [Concomitant]
  6. CARBIDOPA/LEVODOPA (SINEMET) [Concomitant]
  7. PIOGLITAZONE (PIOGLITAZONE) [Concomitant]
  8. FLUTICASONE (FLUTICASONE) [Concomitant]
  9. HYDROCHLOROTHIAZIDE (HYDROCHLOROTHIAZIDE) [Concomitant]
  10. SALMETEROL (SALMETEROL) [Concomitant]

REACTIONS (5)
  - Aplastic anaemia [None]
  - Off label use [None]
  - Infection [None]
  - Haemoptysis [None]
  - Ecchymosis [None]
